FAERS Safety Report 17594866 (Version 2)
Quarter: 2020Q2

REPORT INFORMATION
  Report Type: Report from Study
  Country: US (occurrence: US)
  Receive Date: 20200328
  Receipt Date: 20200401
  Transmission Date: 20200713
  Serious: Yes (Hospitalization)
  Sender: FDA-Public Use
  Company Number: NVSC2020US086447

PATIENT
  Sex: Male

DRUGS (1)
  1. ENTRESTO [Suspect]
     Active Substance: SACUBITRIL\VALSARTAN
     Indication: PRODUCT USED FOR UNKNOWN INDICATION
     Dosage: 1 DF (SACUBITRIL 24 MG, VALSARTAN 26 MG), QD
     Route: 048

REACTIONS (5)
  - Fluid retention [Unknown]
  - Tinea pedis [Unknown]
  - Sleep disorder [Unknown]
  - Underdose [Unknown]
  - Pneumonia [Unknown]
